FAERS Safety Report 25821900 (Version 1)
Quarter: 2025Q3

REPORT INFORMATION
  Report Type: Spontaneous
  Country: CA (occurrence: CA)
  Receive Date: 20250919
  Receipt Date: 20250919
  Transmission Date: 20251021
  Serious: Yes (Other)
  Sender: CELLTRION
  Company Number: CA-CELLTRION INC.-2025CA033193

PATIENT

DRUGS (1)
  1. INFLIXIMAB [Suspect]
     Active Substance: INFLIXIMAB
     Indication: Crohn^s disease
     Dosage: MAINTENANCE - 120 MG EVERY 14 DAYS
     Route: 058
     Dates: start: 20241125

REACTIONS (2)
  - Haematochezia [Unknown]
  - Heat stroke [Unknown]

NARRATIVE: CASE EVENT DATE: 20250801
